FAERS Safety Report 6869518-6 (Version None)
Quarter: 2010Q3

REPORT INFORMATION
  Report Type: 
  Country: None (occurrence: None)
  Receive Date: 20100722
  Receipt Date: 20080814
  Transmission Date: 20110219
  Serious: No
  Sender: FDA-Public Use
  Company Number: US-PFIZER INC-2008065737

PATIENT
  Sex: Female
  Weight: 61.818 kg

DRUGS (5)
  1. CHANTIX [Suspect]
     Indication: SMOKING CESSATION THERAPY
     Dates: start: 20080710
  2. ZETIA [Concomitant]
  3. GLUCOSAMINE [Concomitant]
  4. DITROPAN [Concomitant]
  5. VITAMIN C [Concomitant]

REACTIONS (5)
  - DRY MOUTH [None]
  - GASTROOESOPHAGEAL REFLUX DISEASE [None]
  - INCORRECT DRUG ADMINISTRATION DURATION [None]
  - ORAL PAIN [None]
  - OROPHARYNGEAL BLISTERING [None]
